FAERS Safety Report 7241766-5 (Version None)
Quarter: 2011Q1

REPORT INFORMATION
  Report Type: 
  Country: None (occurrence: None)
  Receive Date: 20110114
  Receipt Date: 20101230
  Transmission Date: 20110831
  Serious: Yes (Other)
  Sender: FDA-Public Use
  Company Number: AUR-APL-2010-03160

PATIENT
  Age: 63 Year
  Sex: Male

DRUGS (2)
  1. GLIMEPIRIDE [Suspect]
     Indication: DIABETES MELLITUS
     Dosage: 6MG-DAILY
     Dates: start: 20070101
  2. METFORMIN [Suspect]
     Indication: DIABETES MELLITUS
     Dosage: 2000MG-DAILY
     Dates: start: 20070101, end: 20070101

REACTIONS (3)
  - RENAL FAILURE [None]
  - DISEASE PROGRESSION [None]
  - HYPOGLYCAEMIA [None]
